FAERS Safety Report 5164515-3 (Version None)
Quarter: 2006Q4

REPORT INFORMATION
  Report Type: 
  Country: None (occurrence: None)
  Receive Date: 20061127
  Receipt Date: 20061114
  Transmission Date: 20070319
  Serious: Yes (Hospitalization)
  Sender: FDA-Public Use
  Company Number: FABR-11743

PATIENT
  Age: 41 Year
  Sex: Male
  Weight: 78.9259 kg

DRUGS (2)
  1. FABRAZYME [Suspect]
     Indication: FABRY'S DISEASE
     Dosage: 85 MG Q2WKS IV
     Route: 042
     Dates: start: 20050101
  2. FABRAZYME [Suspect]

REACTIONS (6)
  - COLONIC OBSTRUCTION [None]
  - COLONIC STENOSIS [None]
  - HYPOTENSION [None]
  - INTESTINAL ISCHAEMIA [None]
  - NONSPECIFIC REACTION [None]
  - REFUSAL OF TREATMENT BY PATIENT [None]
